FAERS Safety Report 17691801 (Version 8)
Quarter: 2020Q4

REPORT INFORMATION
  Report Type: Report from Study
  Country: US (occurrence: US)
  Receive Date: 20200422
  Receipt Date: 20201230
  Transmission Date: 20210113
  Serious: Yes (Other)
  Sender: FDA-Public Use
  Company Number: NVSC2020US105248

PATIENT
  Sex: Female

DRUGS (6)
  1. BEOVU [Suspect]
     Active Substance: BROLUCIZUMAB-DBLL
     Indication: NEOVASCULAR AGE-RELATED MACULAR DEGENERATION
     Dosage: UNK
     Route: 047
     Dates: start: 20200101
  2. BEOVU [Suspect]
     Active Substance: BROLUCIZUMAB-DBLL
     Dosage: UNK
     Route: 047
     Dates: start: 20200201
  3. BEOVU [Suspect]
     Active Substance: BROLUCIZUMAB-DBLL
     Dosage: UNK
     Route: 047
     Dates: start: 202003
  4. ENTRESTO [Suspect]
     Active Substance: SACUBITRIL\VALSARTAN
     Indication: PRODUCT USED FOR UNKNOWN INDICATION
     Dosage: SINCE 2 YEARS
     Route: 065
  5. BEOVU [Suspect]
     Active Substance: BROLUCIZUMAB-DBLL
     Dosage: UNK
     Route: 047
     Dates: start: 20201022
  6. BEOVU [Suspect]
     Active Substance: BROLUCIZUMAB-DBLL
     Dosage: UNK
     Route: 047
     Dates: start: 20200917

REACTIONS (12)
  - Diabetes mellitus [Recovering/Resolving]
  - Fatigue [Unknown]
  - Cardiac failure [Recovering/Resolving]
  - Pain in extremity [Recovering/Resolving]
  - Chronic lymphocytic leukaemia [Unknown]
  - Ocular hyperaemia [Unknown]
  - Renal impairment [Unknown]
  - Eye pruritus [Unknown]
  - Gait disturbance [Recovering/Resolving]
  - Fear [Recovering/Resolving]
  - White blood cell count decreased [Unknown]
  - Hypertension [Recovering/Resolving]
